FAERS Safety Report 4382149-5 (Version None)
Quarter: 2004Q2

REPORT INFORMATION
  Report Type: 
  Country: None (occurrence: None)
  Receive Date: 20040614
  Receipt Date: 20031120
  Transmission Date: 20050107
  Serious: Yes (Death, Other)
  Sender: FDA-Public Use
  Company Number: 2003-0112-EUR(0)

PATIENT
  Age: 7 Year
  Sex: Female

DRUGS (5)
  1. XYLOCAINE [Suspect]
     Indication: LOCAL ANAESTHESIA
     Dosage: (0.0066 LIT, ONCE), INJECT-
  2. METHOHEXITONE (METHOHEXITAL) [Suspect]
     Indication: LOCAL ANAESTHESIA
     Dosage: 40 MG, ONCE
  3. PENTOBARBITONE (PENTOBARBITAL) [Suspect]
     Dosage: 80-100 MG
  4. PETHIDINE [Suspect]
     Indication: LOCAL ANAESTHESIA
  5. HYOSCINE HBR HYT [Suspect]
     Indication: LOCAL ANAESTHESIA

REACTIONS (1)
  - APNOEA [None]
